FAERS Safety Report 6296582-8 (Version None)
Quarter: 2009Q3

REPORT INFORMATION
  Report Type: 
  Country: None (occurrence: None)
  Receive Date: 20090804
  Receipt Date: 20090728
  Transmission Date: 20100115
  Serious: Yes (Death, Hospitalization, Other)
  Sender: FDA-Public Use
  Company Number: US-CELGENEUS-163-21880-09072108

PATIENT
  Sex: Female

DRUGS (1)
  1. REVLIMID [Suspect]
     Route: 048
     Dates: start: 20071211, end: 20071213

REACTIONS (3)
  - ACUTE MYELOID LEUKAEMIA [None]
  - CAECITIS [None]
  - MYELODYSPLASTIC SYNDROME TRANSFORMATION [None]
